FAERS Safety Report 8531062-8 (Version None)
Quarter: 2012Q3

REPORT INFORMATION
  Report Type: 
  Country: None (occurrence: None)
  Receive Date: 20120723
  Receipt Date: 20120711
  Transmission Date: 20120928
  Serious: Yes (Other)
  Sender: FDA-Public Use
  Company Number: AU-ROCHE-1090843

PATIENT
  Sex: Female

DRUGS (3)
  1. FLUOROURACIL [Concomitant]
  2. IRINOTECAN HCL [Concomitant]
     Indication: GASTRIC CANCER
  3. HERCEPTIN [Suspect]
     Indication: GASTRIC CANCER

REACTIONS (1)
  - DISEASE PROGRESSION [None]
